FAERS Safety Report 6582532-3 (Version None)
Quarter: 2010Q1

REPORT INFORMATION
  Report Type: 
  Country: None (occurrence: None)
  Receive Date: 20100216
  Receipt Date: 20100208
  Transmission Date: 20100710
  Serious: Yes (Hospitalization)
  Sender: FDA-Public Use
  Company Number: FR-ASTRAZENECA-2009SE32952

PATIENT
  Age: 51 Year
  Sex: Female

DRUGS (8)
  1. CRESTOR [Interacting]
     Indication: PROPHYLAXIS
     Route: 048
     Dates: start: 20070101, end: 20091022
  2. FUCIDINE [Interacting]
     Indication: INFECTION
     Route: 048
     Dates: start: 20090921, end: 20091022
  3. OFLOCET [Suspect]
     Indication: INFECTION
     Route: 048
     Dates: start: 20090921, end: 20091022
  4. NEXIUM [Concomitant]
     Route: 048
  5. SKENAN [Concomitant]
     Route: 048
  6. LAROXYL [Concomitant]
     Route: 048
  7. LYRICA [Concomitant]
     Route: 048
  8. KARDEGIC [Concomitant]
     Route: 048

REACTIONS (3)
  - CYTOLYTIC HEPATITIS [None]
  - DRUG INTERACTION [None]
  - RHABDOMYOLYSIS [None]
